FAERS Safety Report 13891679 (Version 2)
Quarter: 2017Q3

REPORT INFORMATION
  Report Type: Report from Study
  Country: AT (occurrence: AT)
  Receive Date: 20170822
  Receipt Date: 20170828
  Transmission Date: 20171127
  Serious: Yes (Other)
  Sender: FDA-Public Use
  Company Number: AT-GILEAD-2017-0288441

PATIENT
  Age: 64 Year
  Sex: Male

DRUGS (7)
  1. VALCYTE [Concomitant]
     Active Substance: VALGANCICLOVIR HYDROCHLORIDE
  2. NEULASTA [Concomitant]
     Active Substance: PEGFILGRASTIM
  3. BACTRIM [Concomitant]
     Active Substance: SULFAMETHOXAZOLE\TRIMETHOPRIM
  4. RITUXIMAB. [Concomitant]
     Active Substance: RITUXIMAB
     Indication: B-CELL SMALL LYMPHOCYTIC LYMPHOMA
     Dosage: 500 MG/M2, Q2WK
     Route: 042
     Dates: start: 201503, end: 201508
  5. IDELALISIB [Suspect]
     Active Substance: IDELALISIB
     Indication: B-CELL SMALL LYMPHOCYTIC LYMPHOMA
     Dosage: 150 MG, ^2X1^, 6TH TREATMENT
     Route: 048
     Dates: start: 201503, end: 201508
  6. IDELALISIB [Suspect]
     Active Substance: IDELALISIB
     Dosage: ^2X^, 150 MG
     Route: 048
     Dates: start: 201508
  7. FRAGMIN [Concomitant]
     Active Substance: DALTEPARIN SODIUM
     Indication: CHRONIC KIDNEY DISEASE
     Dosage: 2500 IU, QD

REACTIONS (12)
  - Chronic lymphocytic leukaemia recurrent [Unknown]
  - White blood cell count increased [Unknown]
  - Pleural effusion [Unknown]
  - Haemolysis [Unknown]
  - Lymphadenopathy [Unknown]
  - Atelectasis [Unknown]
  - White blood cell count increased [Unknown]
  - Off label use [Unknown]
  - Lymphocyte count increased [Unknown]
  - Unevaluable event [Unknown]
  - Laboratory test abnormal [Unknown]
  - Bronchitis [Unknown]

NARRATIVE: CASE EVENT DATE: 201508
